FAERS Safety Report 7371273-0 (Version None)
Quarter: 2011Q1

REPORT INFORMATION
  Report Type: 
  Country: None (occurrence: None)
  Receive Date: 20110324
  Receipt Date: 20101018
  Transmission Date: 20110831
  Serious: Yes (Hospitalization, Other)
  Sender: FDA-Public Use
  Company Number: US-BAYER-201023660NA

PATIENT
  Sex: Female
  Weight: 99.773 kg

DRUGS (5)
  1. YASMIN [Suspect]
     Dosage: UNK
     Dates: start: 20080114, end: 20080303
  2. ALLEGRA [Concomitant]
     Dosage: 180 MG, QD
     Route: 048
  3. YASMIN [Suspect]
     Dosage: UNK UNK, QD
     Route: 048
     Dates: start: 20080101, end: 20080901
  4. DEPO-PROVERA [Concomitant]
     Dosage: UNK
     Dates: start: 20080101
  5. AVELOX [Concomitant]
     Dosage: UNK
     Dates: start: 20080919

REACTIONS (1)
  - PULMONARY EMBOLISM [None]
